FAERS Safety Report 9782479 (Version 2)
Quarter: 2013Q4

REPORT INFORMATION
  Report Type: Report from Study
  Country: US (occurrence: US)
  Receive Date: 20131226
  Receipt Date: 20131226
  Transmission Date: 20140711
  Serious: Yes (Hospitalization)
  Sender: FDA-Public Use
  Company Number: US-JNJFOC-20110606357

PATIENT
  Age: 74 Year
  Sex: Male
  Weight: 75 kg

DRUGS (18)
  1. GOLIMUMAB [Suspect]
     Indication: RHEUMATOID ARTHRITIS
     Route: 042
     Dates: start: 20110203
  2. GOLIMUMAB [Suspect]
     Indication: RHEUMATOID ARTHRITIS
     Route: 042
     Dates: start: 20100224
  3. PLACEBO [Suspect]
     Indication: RHEUMATOID ARTHRITIS
     Route: 058
     Dates: start: 20110203
  4. PLACEBO [Suspect]
     Indication: RHEUMATOID ARTHRITIS
     Route: 058
     Dates: start: 20100224
  5. ATENOLOL [Concomitant]
     Route: 048
  6. CALCIUM [Concomitant]
  7. DIGOXIN [Concomitant]
  8. FISH OIL [Concomitant]
  9. TRIAMTERENE HCTZ [Concomitant]
     Dosage: 75/50 MG
  10. OMEPRAZOLE [Concomitant]
  11. ULTRAM ER [Concomitant]
  12. METHOTREXATE [Concomitant]
  13. FOLIC ACID [Concomitant]
  14. PREDNISONE [Concomitant]
  15. EFFIENT [Concomitant]
     Route: 048
     Dates: start: 20100728
  16. RAMIPRIL [Concomitant]
     Route: 048
  17. CALCIUM [Concomitant]
     Route: 048
     Dates: start: 2008
  18. DIGOXIN [Concomitant]
     Route: 048
     Dates: start: 1996

REACTIONS (4)
  - Cardiac failure congestive [Recovering/Resolving]
  - Acute respiratory failure [Recovered/Resolved]
  - Pneumonia [Recovered/Resolved]
  - Sepsis [Recovered/Resolved]
